FAERS Safety Report 25041040 (Version 1)
Quarter: 2025Q1

REPORT INFORMATION
  Report Type: Spontaneous
  Country: US (occurrence: US)
  Receive Date: 20250305
  Receipt Date: 20250305
  Transmission Date: 20250408
  Serious: Yes (Hospitalization)
  Sender: DOMPE FARMACEUTICI
  Company Number: US-FARMAPROD-202502-0610

PATIENT
  Sex: Male

DRUGS (10)
  1. OXERVATE [Suspect]
     Active Substance: CENEGERMIN-BKBJ
     Indication: Neurotrophic keratopathy
     Route: 047
     Dates: start: 20250114
  2. ELIQUIS [Concomitant]
     Active Substance: APIXABAN
  3. ALLOPURINOL [Concomitant]
     Active Substance: ALLOPURINOL
  4. JANUVIA [Concomitant]
     Active Substance: SITAGLIPTIN PHOSPHATE
  5. ACTOS [Concomitant]
     Active Substance: PIOGLITAZONE HYDROCHLORIDE
  6. SOTALOL [Concomitant]
     Active Substance: SOTALOL
  7. FUROSEMIDE [Concomitant]
     Active Substance: FUROSEMIDE
  8. ALPRAZOLAM [Concomitant]
     Active Substance: ALPRAZOLAM
  9. MOXIFLOXACIN [Concomitant]
     Active Substance: MOXIFLOXACIN
  10. LATANOPROST [Concomitant]
     Active Substance: LATANOPROST

REACTIONS (1)
  - Illness [Unknown]
